FAERS Safety Report 8853327 (Version 1)
Quarter: 2012Q4

REPORT INFORMATION
  Report Type: 
  Country: US (occurrence: US)
  Receive Date: 20121022
  Receipt Date: 20121022
  Transmission Date: 20130627
  Serious: Yes (Other)
  Sender: FDA-Public Use
  Company Number: US-ARROW-2012-17966

PATIENT
  Age: 33 Year
  Sex: Female

DRUGS (5)
  1. TRAMADOL HYDROCHLORIDE [Suspect]
     Indication: PAIN
     Dosage: 300 mg, daily
     Route: 065
  2. VENLAFAXINE HYDROCHLORIDE [Suspect]
     Indication: DEPRESSION
     Dosage: 300 mg, daily
     Route: 065
  3. SERTRALINE HYDROCHLORIDE (UNKNOWN) [Suspect]
     Indication: DEPRESSION
     Dosage: 50 mg, daily
     Route: 065
  4. FLUOXETINE HYDROCHLORIDE (UNKNOWN) [Suspect]
     Indication: DEPRESSION
     Dosage: UNK
     Route: 065
  5. CITALOPRAM [Suspect]
     Indication: DEPRESSION
     Dosage: UNK
     Route: 065

REACTIONS (8)
  - Convulsion [Recovered/Resolved]
  - Drug interaction [Recovered/Resolved]
  - Drug abuse [Recovered/Resolved]
  - Gastrointestinal disorder [Unknown]
  - Weight increased [Unknown]
  - Depression [None]
  - Activities of daily living impaired [None]
  - Impaired work ability [None]
